FAERS Safety Report 9813377 (Version 2)
Quarter: 2014Q1

REPORT INFORMATION
  Report Type: Spontaneous
  Country: US (occurrence: US)
  Receive Date: 20140113
  Receipt Date: 20140113
  Transmission Date: 20141002
  Serious: Yes (Disabling)
  Sender: FDA-Public Use
  Company Number: US-GE HEALTHCARE MEDICAL DIAGNOSTICS-OSCN-PR-0902S-0094

PATIENT
  Sex: Female

DRUGS (9)
  1. GADOLINIUM (UNSPECIFIED) [Suspect]
     Indication: CONVULSION
     Route: 042
     Dates: start: 20040212, end: 20040212
  2. GADOLINIUM (UNSPECIFIED) [Suspect]
     Indication: HEADACHE
     Route: 042
     Dates: start: 20040218, end: 20040218
  3. GADOLINIUM (UNSPECIFIED) [Suspect]
     Indication: NYSTAGMUS
     Route: 042
     Dates: start: 20040405, end: 20050405
  4. GADOLINIUM (UNSPECIFIED) [Suspect]
     Indication: DIPLOPIA
     Route: 042
     Dates: start: 20040629, end: 20040629
  5. GADOLINIUM (UNSPECIFIED) [Suspect]
     Indication: PNEUMONIA
     Route: 042
     Dates: start: 20060228, end: 20060228
  6. GADOLINIUM (UNSPECIFIED) [Suspect]
     Indication: BACK PAIN
     Route: 042
     Dates: start: 20060315, end: 20060315
  7. GADOLINIUM (UNSPECIFIED) [Suspect]
     Indication: SYSTEMIC LUPUS ERYTHEMATOSUS
  8. GADOLINIUM (UNSPECIFIED) [Suspect]
     Indication: PANCREATITIS
  9. GADOLINIUM (UNSPECIFIED) [Suspect]
     Indication: RENAL FAILURE

REACTIONS (1)
  - Nephrogenic systemic fibrosis [Not Recovered/Not Resolved]
